FAERS Safety Report 9587282 (Version 3)
Quarter: 2013Q4

REPORT INFORMATION
  Report Type: Report from Study
  Country: US (occurrence: US)
  Receive Date: 20131003
  Receipt Date: 20131206
  Transmission Date: 20140711
  Serious: Yes (Hospitalization)
  Sender: FDA-Public Use
  Company Number: US-ROCHE-1036902

PATIENT
  Age: 68 Year
  Sex: Male
  Weight: 53.2 kg

DRUGS (5)
  1. BEVACIZUMAB [Suspect]
     Indication: COLORECTAL CANCER METASTATIC
     Dosage: DATE OF MOST RECENT CYCLE PRIOR TO ONSET: 04/JAN/2012
     Route: 065
     Dates: start: 20111207
  2. FOLINIC ACID [Suspect]
     Indication: COLORECTAL CANCER METASTATIC
     Dosage: DATE OF MOST RECENT CYCLE PRIOR TO ONSET: 04/JAN/2012
     Route: 065
     Dates: start: 20111207
  3. OXALIPLATIN [Suspect]
     Indication: COLORECTAL CANCER METASTATIC
     Dosage: DATE OF MOST RECENT CYCLE PRIOR TO ONSET: 04/JAN/2012
     Route: 065
     Dates: start: 20111207
  4. 5-FLUOROURACIL [Suspect]
     Indication: COLORECTAL CANCER METASTATIC
     Dosage: DATE OF MOST RECENT CYCLE PRIOR TO ONSET: 04/JAN/2012
     Route: 040
     Dates: start: 20111207
  5. 5-FLUOROURACIL [Suspect]
     Route: 040

REACTIONS (3)
  - Small intestinal perforation [Recovered/Resolved with Sequelae]
  - Ileus [Recovered/Resolved]
  - Small intestinal obstruction [Recovered/Resolved with Sequelae]
